FAERS Safety Report 7773820-3 (Version None)
Quarter: 2011Q3

REPORT INFORMATION
  Report Type: 
  Country: None (occurrence: None)
  Receive Date: 20110920
  Receipt Date: 20110906
  Transmission Date: 20111222
  Serious: Yes (Other)
  Sender: FDA-Public Use
  Company Number: 2011SP024136

PATIENT
  Age: 20 Year
  Sex: Female

DRUGS (1)
  1. CERAZETTE (DESOGESTREL) [Suspect]
     Indication: CONTRACEPTION
     Dates: start: 20090101

REACTIONS (4)
  - COLITIS MICROSCOPIC [None]
  - AMENORRHOEA [None]
  - CONDITION AGGRAVATED [None]
  - GENERAL PHYSICAL HEALTH DETERIORATION [None]
